FAERS Safety Report 6265954-X (Version None)
Quarter: 2009Q3

REPORT INFORMATION
  Report Type: 
  Country: None (occurrence: None)
  Receive Date: 20090709
  Receipt Date: 20090625
  Transmission Date: 20100115
  Serious: Yes (Hospitalization)
  Sender: FDA-Public Use
  Company Number: 2009001899

PATIENT
  Age: 61 Year
  Sex: Male

DRUGS (7)
  1. ERLOTINIB (ERLOTINIB) (TABLET) (ERLOTINIB) [Suspect]
     Indication: LUNG NEOPLASM MALIGNANT
     Dosage: (150 MG, QD), ORAL
     Route: 048
     Dates: start: 20090101, end: 20090112
  2. DOCETAXEL [Suspect]
     Indication: LUNG NEOPLASM MALIGNANT
     Dosage: (75 MG/M2, Q3W), INTRAVENOUS
     Route: 042
     Dates: start: 20081229
  3. ACENOCOUMAROL (ACENOCOUMAROL) [Suspect]
     Indication: HEART VALVE REPLACEMENT
     Dosage: ORAL
     Route: 048
     Dates: start: 20040101
  4. NEBIVOLOL HCL [Concomitant]
  5. FRUMIL (FRUMIL) [Concomitant]
  6. PROCORALAN [Concomitant]
  7. SPIRIVA [Concomitant]

REACTIONS (3)
  - FEBRILE NEUTROPENIA [None]
  - HAEMOPTYSIS [None]
  - INTERNATIONAL NORMALISED RATIO INCREASED [None]
